FAERS Safety Report 12836570 (Version 3)
Quarter: 2016Q4

REPORT INFORMATION
  Report Type: Spontaneous
  Country: JP (occurrence: JP)
  Receive Date: 20161011
  Receipt Date: 20161216
  Transmission Date: 20170207
  Serious: Yes (Hospitalization)
  Sender: FDA-Public Use
  Company Number: JP-PFIZER INC-2016469578

PATIENT
  Age: 87 Year
  Sex: Female

DRUGS (2)
  1. HALCION [Suspect]
     Active Substance: TRIAZOLAM
     Dosage: 0.125 MG, DAILY
     Route: 048
     Dates: start: 20151116
  2. ROHYPNOL [Concomitant]
     Active Substance: FLUNITRAZEPAM
     Dosage: 0.5 MG, 1X/DAY
     Route: 048
     Dates: start: 20151116

REACTIONS (4)
  - Overdose [Unknown]
  - Amnesia [Unknown]
  - Compression fracture [Recovering/Resolving]
  - Therapeutic response increased [Unknown]

NARRATIVE: CASE EVENT DATE: 201607
